FAERS Safety Report 7356196-5 (Version None)
Quarter: 2011Q1

REPORT INFORMATION
  Report Type: 
  Country: None (occurrence: None)
  Receive Date: 20110316
  Receipt Date: 20110308
  Transmission Date: 20110831
  Serious: Yes (Other)
  Sender: FDA-Public Use
  Company Number: US-PFIZER INC-HQWYE697011OCT04

PATIENT
  Sex: Female

DRUGS (10)
  1. MEDROXYPROGESTERONE ACETATE [Suspect]
     Indication: MENOPAUSAL SYMPTOMS
  2. CYCRIN [Suspect]
     Indication: HORMONE REPLACEMENT THERAPY
     Dosage: UNK
     Route: 048
     Dates: start: 19900101
  3. MEDROXYPROGESTERONE ACETATE [Suspect]
     Indication: PROPHYLAXIS
  4. CYCRIN [Suspect]
     Indication: MENOPAUSAL SYMPTOMS
  5. PREMARIN [Suspect]
     Indication: HORMONE REPLACEMENT THERAPY
     Dosage: UNK
     Route: 048
     Dates: start: 19900101
  6. PREMARIN [Suspect]
     Indication: MENOPAUSAL SYMPTOMS
  7. MEDROXYPROGESTERONE ACETATE [Suspect]
     Indication: HORMONE REPLACEMENT THERAPY
     Dosage: UNK
     Dates: start: 19900101
  8. PREMARIN [Suspect]
     Indication: CARDIAC DISORDER
  9. PREMARIN [Suspect]
     Indication: PROPHYLAXIS
  10. MEDROXYPROGESTERONE ACETATE [Suspect]
     Indication: CARDIAC DISORDER

REACTIONS (1)
  - BREAST CANCER METASTATIC [None]
